FAERS Safety Report 25754493 (Version 1)
Quarter: 2025Q3

REPORT INFORMATION
  Report Type: Spontaneous
  Country: CN (occurrence: CN)
  Receive Date: 20250903
  Receipt Date: 20250903
  Transmission Date: 20251020
  Serious: Yes (Other)
  Sender: BAXTER
  Company Number: None

PATIENT
  Age: 38 Year
  Sex: Female
  Weight: 75 kg

DRUGS (6)
  1. CYCLOPHOSPHAMIDE [Suspect]
     Active Substance: CYCLOPHOSPHAMIDE
     Indication: Breast cancer female
     Dosage: 900 MG, QD, INTRAVENOUS BOLUS
     Route: 042
     Dates: start: 20250429, end: 20250429
  2. CYCLOPHOSPHAMIDE [Suspect]
     Active Substance: CYCLOPHOSPHAMIDE
     Indication: Hormone receptor negative HER2 positive breast cancer
  3. SODIUM CHLORIDE [Suspect]
     Active Substance: SODIUM CHLORIDE
     Dosage: 50 ML, QD, INTRAVENOUS BOLUS (WITH CYCLOPHOSPHAMIDE)
     Route: 042
     Dates: start: 20250429, end: 20250429
  4. SODIUM CHLORIDE [Suspect]
     Active Substance: SODIUM CHLORIDE
     Dosage: 100 ML, QD (WITH PHARMORUBICIN)
     Route: 041
     Dates: start: 20250429, end: 20250429
  5. EPIRUBICIN [Suspect]
     Active Substance: EPIRUBICIN
     Indication: Breast cancer female
     Dosage: 135 MG, QD
     Route: 041
     Dates: start: 20250429, end: 20250429
  6. EPIRUBICIN [Suspect]
     Active Substance: EPIRUBICIN
     Indication: Hormone receptor negative HER2 positive breast cancer

REACTIONS (2)
  - Neutrophil count decreased [Recovering/Resolving]
  - White blood cell count decreased [Recovering/Resolving]

NARRATIVE: CASE EVENT DATE: 20250513
